FAERS Safety Report 9814773 (Version 2)
Quarter: 2014Q3

REPORT INFORMATION
  Report Type: Spontaneous
  Country: US (occurrence: US)
  Receive Date: 20140113
  Receipt Date: 20140816
  Transmission Date: 20150326
  Serious: Yes (Hospitalization, Other)
  Sender: FDA-Public Use
  Company Number: US-009507513-1401USA004949

PATIENT
  Sex: Female

DRUGS (1)
  1. NUVARING [Suspect]
     Active Substance: ETHINYL ESTRADIOL\ETONOGESTREL
     Indication: CONTRACEPTION
     Dosage: UNK
     Route: 067
     Dates: start: 20130207, end: 20130618

REACTIONS (9)
  - Pulmonary embolism [Unknown]
  - Cardiomegaly [Unknown]
  - International normalised ratio increased [Recovering/Resolving]
  - Anaemia [Unknown]
  - Pulmonary mass [Unknown]
  - Hypokalaemia [Unknown]
  - Cholecystectomy [Unknown]
  - Pneumonia [Recovered/Resolved]
  - Urinary tract infection [Unknown]

NARRATIVE: CASE EVENT DATE: 20130612
